FAERS Safety Report 9349823 (Version 1)
Quarter: 2013Q2

REPORT INFORMATION
  Report Type: Spontaneous
  Country: US (occurrence: None)
  Receive Date: 20130611
  Receipt Date: 20130611
  Transmission Date: 20140414
  Serious: Yes (Hospitalization)
  Sender: FDA-Public Use
  Company Number: 2013P1006861

PATIENT
  Age: 61 Year
  Sex: Female

DRUGS (6)
  1. LEVOFLOXACIN [Suspect]
     Indication: ARTHRITIS BACTERIAL
  2. CEFEPIME [Suspect]
     Indication: ARTHRITIS BACTERIAL
  3. TACROLIMUS [Concomitant]
  4. COUMADIN [Concomitant]
  5. DOCUSTATE SODIUM [Concomitant]
  6. METOPROLOL [Concomitant]

REACTIONS (9)
  - Pseudolymphoma [None]
  - Drug eruption [None]
  - Skin exfoliation [None]
  - Pruritus [None]
  - Urticaria [None]
  - Rash [None]
  - Erythema [None]
  - Dermatitis [None]
  - Macule [None]
